FAERS Safety Report 7448505-3 (Version None)
Quarter: 2011Q2

REPORT INFORMATION
  Report Type: 
  Country: None (occurrence: None)
  Receive Date: 20110429
  Receipt Date: 20100614
  Transmission Date: 20111010
  Serious: No
  Sender: FDA-Public Use
  Company Number: US-ASTRAZENECA-2010SE27686

PATIENT
  Age: 38 Year
  Sex: Female

DRUGS (8)
  1. PREDNISONE [Concomitant]
     Indication: RHEUMATOID ARTHRITIS
  2. HUMIRA [Concomitant]
     Indication: RHEUMATOID ARTHRITIS
  3. HERBAL SUPPLEMENTS [Concomitant]
  4. FOLIC ACID [Concomitant]
  5. INDOCIN [Concomitant]
     Indication: RHEUMATOID ARTHRITIS
  6. PLAQUENIL [Concomitant]
     Indication: RHEUMATOID ARTHRITIS
  7. NEXIUM [Suspect]
     Indication: GASTROOESOPHAGEAL REFLUX DISEASE
     Route: 048
     Dates: start: 20100101
  8. CIMZIA [Concomitant]
     Indication: RHEUMATOID ARTHRITIS

REACTIONS (1)
  - RHEUMATOID ARTHRITIS [None]
